FAERS Safety Report 20666821 (Version 1)
Quarter: 2022Q2

REPORT INFORMATION
  Report Type: Spontaneous
  Country: US (occurrence: US)
  Receive Date: 20220403
  Receipt Date: 20220403
  Transmission Date: 20220720
  Serious: No
  Sender: FDA-Public Use
  Company Number: US-BRISTOL-MYERS SQUIBB COMPANY-2022-012745

PATIENT
  Age: 72 Year
  Sex: Female
  Weight: 84.37 kg

DRUGS (1)
  1. REVLIMID [Suspect]
     Active Substance: LENALIDOMIDE
     Indication: Plasma cell myeloma
     Dosage: 5 MILLIGRAM, DAILY FOR 21 DAYS
     Route: 048
     Dates: start: 202112

REACTIONS (3)
  - Diarrhoea [Unknown]
  - Constipation [Unknown]
  - Night sweats [Unknown]
